FAERS Safety Report 6298478-4 (Version None)
Quarter: 2009Q3

REPORT INFORMATION
  Report Type: 
  Country: None (occurrence: None)
  Receive Date: 20090805
  Receipt Date: 20090729
  Transmission Date: 20100115
  Serious: Yes (Hospitalization)
  Sender: FDA-Public Use
  Company Number: US-GENENTECH-288004

PATIENT
  Sex: Female

DRUGS (1)
  1. SOMATROPIN [Suspect]
     Indication: CYTOGENETIC ABNORMALITY
     Dosage: 0.6 MG, QD
     Route: 065
     Dates: start: 20041115

REACTIONS (2)
  - PYREXIA [None]
  - URTICARIA [None]
